FAERS Safety Report 6233766-9 (Version None)
Quarter: 2009Q2

REPORT INFORMATION
  Report Type: 
  Country: None (occurrence: None)
  Receive Date: 20090616
  Receipt Date: 20090616
  Transmission Date: 20091009
  Serious: No
  Sender: FDA-Public Use
  Company Number: None

PATIENT
  Age: 1 Month
  Sex: Female
  Weight: 45.3597 kg

DRUGS (1)
  1. AMITRIPTYLINE HCL [Suspect]
     Indication: INSOMNIA
     Dosage: 1/2 OR 1 BEFORE BEDTIME PO
     Route: 048
     Dates: start: 20090303, end: 20090306

REACTIONS (2)
  - ACTIVITIES OF DAILY LIVING IMPAIRED [None]
  - HANGOVER [None]
